FAERS Safety Report 20020048 (Version 1)
Quarter: 2021Q4

REPORT INFORMATION
  Report Type: Spontaneous
  Country: GB (occurrence: GB)
  Receive Date: 20211101
  Receipt Date: 20211101
  Transmission Date: 20220303
  Serious: Yes (Disabling, Other)
  Sender: FDA-Public Use
  Company Number: None

PATIENT
  Age: 36 Year
  Sex: Female
  Weight: 67 kg

DRUGS (4)
  1. PROPRANOLOL [Suspect]
     Active Substance: PROPRANOLOL HYDROCHLORIDE
     Indication: Arrhythmia
     Dosage: 30 MILLIGRAM DAILY;
     Route: 048
     Dates: start: 20190410, end: 20191220
  2. AMOXICILLIN\CLAVULANATE POTASSIUM [Concomitant]
     Active Substance: AMOXICILLIN\CLAVULANATE POTASSIUM
     Indication: Ill-defined disorder
  3. QVAR [Concomitant]
     Active Substance: BECLOMETHASONE DIPROPIONATE
     Indication: Ill-defined disorder
  4. TRIMETHOPRIM [Concomitant]
     Active Substance: TRIMETHOPRIM
     Indication: Ill-defined disorder

REACTIONS (18)
  - Psychotic disorder [Unknown]
  - Anxiety [Unknown]
  - Mood altered [Unknown]
  - Dry eye [Unknown]
  - Tunnel vision [Unknown]
  - Hallucination, visual [Unknown]
  - Hemianopia homonymous [Unknown]
  - Visual snow syndrome [Unknown]
  - Amnesia [Unknown]
  - Confusional state [Unknown]
  - Seizure [Unknown]
  - Gastroenteritis [Unknown]
  - Abdominal distension [Unknown]
  - Abnormal weight gain [Unknown]
  - Fatigue [Unknown]
  - Hypotension [Unknown]
  - Tinnitus [Unknown]
  - Platelet count increased [Unknown]
